FAERS Safety Report 8983169 (Version 1)
Quarter: 2012Q4

REPORT INFORMATION
  Report Type: 
  Country: US (occurrence: US)
  Receive Date: 20121212
  Receipt Date: 20121212
  Transmission Date: 20130627
  Serious: Yes (Death, Other)
  Sender: FDA-Public Use
  Company Number: US-ASTELLAS-1119963

PATIENT
  Sex: Female

DRUGS (2)
  1. TARCEVA [Suspect]
     Indication: PANCREATIC CARCINOMA
     Route: 048
     Dates: start: 20111030, end: 20111102
  2. TARCEVA [Suspect]
     Indication: METASTASES TO LIVER

REACTIONS (4)
  - Diarrhoea [Unknown]
  - Failure to thrive [Unknown]
  - Gastrointestinal haemorrhage [Unknown]
  - Pancreatic carcinoma metastatic [Fatal]
